FAERS Safety Report 6524318-1 (Version None)
Quarter: 2009Q4

REPORT INFORMATION
  Report Type: 
  Country: None (occurrence: None)
  Receive Date: 20091231
  Receipt Date: 20091223
  Transmission Date: 20100525
  Serious: Yes (Hospitalization)
  Sender: FDA-Public Use
  Company Number: US-MERCK-0912USA00045

PATIENT
  Age: 65 Year
  Sex: Female

DRUGS (7)
  1. JANUVIA [Suspect]
     Indication: DIABETES MELLITUS
     Route: 048
     Dates: start: 20080101
  2. LOPRESSOR [Concomitant]
     Route: 065
  3. NEXIUM [Concomitant]
     Route: 065
  4. LISINOPRIL [Concomitant]
     Route: 048
  5. FLONASE [Concomitant]
     Route: 065
  6. CRESTOR [Concomitant]
     Route: 065
  7. ZYRTEC [Concomitant]
     Route: 065

REACTIONS (1)
  - COELIAC DISEASE [None]
